FAERS Safety Report 9700697 (Version 1)
Quarter: 2013Q4

REPORT INFORMATION
  Report Type: Spontaneous
  Country: FR (occurrence: FR)
  Receive Date: 20131121
  Receipt Date: 20131121
  Transmission Date: 20140711
  Serious: Yes (Other)
  Sender: FDA-Public Use
  Company Number: PHHY2013FR132834

PATIENT
  Age: 67 Year
  Sex: Male

DRUGS (17)
  1. ZOMETA [Suspect]
     Indication: PROPHYLAXIS
     Dosage: UNK UKN, UNK
     Route: 042
  2. XGEVA [Suspect]
     Indication: PROPHYLAXIS
     Dosage: UNK UKN, UNK
     Route: 042
  3. ZYTIGA [Concomitant]
     Dosage: UNK UKN, UNK
  4. SOLUPRED [Concomitant]
     Dosage: UNK UKN, UNK
  5. ZOLADEX [Concomitant]
     Dosage: UNK UKN, UNK
  6. CACIT D3 [Concomitant]
     Dosage: UNK UKN, UNK
  7. ESIDREX [Concomitant]
     Dosage: UNK UKN, UNK
  8. LODOZ [Concomitant]
     Dosage: UNK UKN, UNK
  9. SPIFEN [Concomitant]
     Dosage: UNK UKN, UNK
  10. ZOCOR [Concomitant]
     Dosage: UNK UKN, UNK
  11. KARDEGIC [Concomitant]
     Dosage: UNK UKN, UNK
  12. LOPERAMIDE [Concomitant]
     Dosage: UNK UKN, UNK
  13. TRIATEC [Concomitant]
     Dosage: UNK UKN, UNK
  14. GLUCOPHAGE [Concomitant]
     Dosage: UNK UKN, UNK
  15. BETNEVAL [Concomitant]
     Dosage: UNK UKN, UNK
  16. DAONIL [Concomitant]
     Dosage: UNK UKN, UNK
  17. DOLIPRANE [Concomitant]
     Dosage: UNK UKN, UNK

REACTIONS (1)
  - Osteonecrosis [Not Recovered/Not Resolved]
